FAERS Safety Report 20349988 (Version 1)
Quarter: 2022Q1

REPORT INFORMATION
  Report Type: Spontaneous
  Country: US (occurrence: None)
  Receive Date: 20220117
  Receipt Date: 20220117
  Transmission Date: 20220424
  Serious: Yes (Hospitalization)
  Sender: FDA-Public Use
  Company Number: None

PATIENT
  Age: 55 Year
  Sex: Female
  Weight: 67.4 kg

DRUGS (2)
  1. OZEMPIC [Suspect]
     Active Substance: SEMAGLUTIDE
     Indication: Type 2 diabetes mellitus
     Dates: start: 20210224
  2. LEVOTHYROXINE [Suspect]
     Active Substance: LEVOTHYROXINE
     Dates: start: 20210224, end: 20210713

REACTIONS (7)
  - Drug interaction [None]
  - Swelling [None]
  - Dysphagia [None]
  - Nausea [None]
  - Vomiting [None]
  - Goitre [None]
  - Hyperthyroidism [None]

NARRATIVE: CASE EVENT DATE: 20220110
